FAERS Safety Report 20981960 (Version 2)
Quarter: 2023Q1

REPORT INFORMATION
  Report Type: Spontaneous
  Country: US (occurrence: US)
  Receive Date: 20220620
  Receipt Date: 20230113
  Transmission Date: 20230417
  Serious: No
  Sender: FDA-Public Use
  Company Number: US-NOVOPROD-914385

PATIENT
  Sex: Female

DRUGS (2)
  1. WEGOVY [Suspect]
     Active Substance: SEMAGLUTIDE
     Indication: Diabetes mellitus
  2. WEGOVY [Suspect]
     Active Substance: SEMAGLUTIDE
     Indication: Weight control
     Dosage: 2.4 MG
     Route: 058
     Dates: end: 20220415

REACTIONS (8)
  - Muscle spasms [Unknown]
  - Malaise [Unknown]
  - Pain [Unknown]
  - Emotional distress [Unknown]
  - Vomiting [Unknown]
  - Product quality issue [Unknown]
  - Product use in unapproved indication [Unknown]
  - Off label use [Unknown]
